FAERS Safety Report 5623435-8 (Version None)
Quarter: 2008Q1

REPORT INFORMATION
  Report Type: 
  Country: None (occurrence: None)
  Receive Date: 20080212
  Receipt Date: 20080131
  Transmission Date: 20080703
  Serious: Yes (Other)
  Sender: FDA-Public Use
  Company Number: SE-PFIZER INC-2007106480

PATIENT
  Age: 50 Year
  Sex: Female

DRUGS (2)
  1. PREDNISOLONE [Suspect]
     Indication: MUSCULOSKELETAL PAIN
     Dosage: DAILY DOSE:5MG-FREQ:DAILY
  2. METHOTREXATE [Concomitant]

REACTIONS (1)
  - UTERINE HAEMORRHAGE [None]
